FAERS Safety Report 15534405 (Version 4)
Quarter: 2018Q4

REPORT INFORMATION
  Report Type: Report from Study
  Country: DE (occurrence: DE)
  Receive Date: 20181021
  Receipt Date: 20181214
  Transmission Date: 20190205
  Serious: Yes (Hospitalization)
  Sender: FDA-Public Use
  Company Number: DE-BAXTER-2018BAX023057

PATIENT
  Age: 80 Year
  Sex: Female
  Weight: 96 kg

DRUGS (56)
  1. RIXIMYO [Suspect]
     Active Substance: RITUXIMAB
     Indication: DIFFUSE LARGE B-CELL LYMPHOMA
     Dosage: 375 MG, UNK
     Route: 041
     Dates: start: 20180719, end: 20180719
  2. RIXIMYO [Suspect]
     Active Substance: RITUXIMAB
     Indication: PRODUCT USED FOR UNKNOWN INDICATION
     Dosage: 730 MG, UNK
     Route: 041
     Dates: start: 20180807, end: 20180807
  3. RIXIMYO [Suspect]
     Active Substance: RITUXIMAB
     Dosage: 730 MG, UNK
     Route: 041
  4. RIXIMYO [Suspect]
     Active Substance: RITUXIMAB
     Dosage: 375 MG, (50 (ML/MIN) FROM 09:50 TO 12:20)
     Route: 041
     Dates: start: 20181008, end: 20181008
  5. PREDNISONE. [Suspect]
     Active Substance: PREDNISONE
     Dosage: 500 MG, UNK
     Route: 048
     Dates: start: 20181008, end: 20181012
  6. LIPROLOG [Concomitant]
     Active Substance: INSULIN LISPRO
     Indication: DIABETES MELLITUS
     Route: 058
  7. PARACETAMOL [Concomitant]
     Active Substance: ACETAMINOPHEN
     Indication: PROPHYLAXIS
     Dosage: UNK
     Route: 048
     Dates: start: 20180719
  8. LERCANIDIPINE [Concomitant]
     Active Substance: LERCANIDIPINE
     Indication: HYPERTENSION
     Route: 048
  9. ENDOXAN 1G [Suspect]
     Active Substance: CYCLOPHOSPHAMIDE
     Indication: DIFFUSE LARGE B-CELL LYMPHOMA
     Dosage: 1090 MG, UNK
     Route: 041
     Dates: start: 20180720, end: 20180720
  10. DOXORUBICIN [Suspect]
     Active Substance: DOXORUBICIN
     Dosage: 73 MG, UNK
     Route: 041
     Dates: start: 20180822, end: 20180822
  11. VINCRISTINE [Suspect]
     Active Substance: VINCRISTINE
     Dosage: 1 MG, UNK
     Route: 041
     Dates: start: 20180822, end: 20180822
  12. PREDNISONE. [Suspect]
     Active Substance: PREDNISONE
     Indication: PRODUCT USED FOR UNKNOWN INDICATION
     Dosage: 500 UNK, UNK
     Route: 048
     Dates: start: 20180807, end: 20180811
  13. TORASEMID [Concomitant]
     Active Substance: TORSEMIDE
     Indication: HYPERTENSION
     Route: 048
  14. RANITIDIN [Concomitant]
     Active Substance: RANITIDINE HYDROCHLORIDE
     Indication: PROPHYLAXIS
     Dosage: UNK
     Route: 042
     Dates: start: 20180719
  15. PEGFILGRASTIM [Concomitant]
     Active Substance: PEGFILGRASTIM
     Indication: PROPHYLAXIS
     Dosage: UNK
     Route: 058
     Dates: start: 20180722
  16. CO TRIMOXAZOL [Concomitant]
     Active Substance: SULFAMETHOXAZOLE\TRIMETHOPRIM
     Indication: PROPHYLAXIS
     Dosage: UNK
     Route: 048
     Dates: start: 20180723
  17. ACICLOVIR [Concomitant]
     Active Substance: ACYCLOVIR
     Indication: PRODUCT USED FOR UNKNOWN INDICATION
     Dosage: UNK
     Route: 048
     Dates: start: 20181008, end: 20181009
  18. ENDOXAN 1G [Suspect]
     Active Substance: CYCLOPHOSPHAMIDE
     Dosage: 1090 MG, UNK
     Route: 041
     Dates: start: 20180919, end: 20180919
  19. DOXORUBICIN [Suspect]
     Active Substance: DOXORUBICIN
     Indication: DIFFUSE LARGE B-CELL LYMPHOMA
     Dosage: 50 MG, UNK
     Route: 041
     Dates: start: 20180720, end: 20180720
  20. DOXORUBICIN [Suspect]
     Active Substance: DOXORUBICIN
     Dosage: 73 MG, UNK
     Route: 041
     Dates: start: 20180919, end: 20180919
  21. VINCRISTINE [Suspect]
     Active Substance: VINCRISTINE
     Indication: PRODUCT USED FOR UNKNOWN INDICATION
     Dosage: 1 MG, UNK
     Route: 041
     Dates: start: 20180808, end: 20180808
  22. VINCRISTINE [Suspect]
     Active Substance: VINCRISTINE
     Dosage: 1 MG, UNK
     Route: 041
     Dates: start: 20180919, end: 20180919
  23. VINCRISTINE [Suspect]
     Active Substance: VINCRISTINE
     Dosage: 1 MG, (INFUSION RATE 6.6 (ML/MIN) FROM 09:30 TO 09:45)
     Route: 041
     Dates: start: 20181009, end: 20181009
  24. RIXIMYO [Suspect]
     Active Substance: RITUXIMAB
     Dosage: 730 MG, (50 (ML/MIN) FROM10:05 TO 12:40)
     Route: 041
     Dates: start: 20180918, end: 20180918
  25. RIXIMYO [Suspect]
     Active Substance: RITUXIMAB
     Dosage: 730 MG, UNK
     Route: 041
     Dates: start: 20180821, end: 20180821
  26. PREDNISONE. [Suspect]
     Active Substance: PREDNISONE
     Indication: DIFFUSE LARGE B-CELL LYMPHOMA
     Dosage: 500 MG, UNK
     Route: 048
     Dates: start: 20180719, end: 20180723
  27. LANTUS [Concomitant]
     Active Substance: INSULIN GLARGINE
     Indication: DIABETES MELLITUS
     Route: 058
  28. CANDESARTAN. [Concomitant]
     Active Substance: CANDESARTAN
     Indication: HYPERTENSION
     Route: 048
  29. SIMVASTATIN. [Concomitant]
     Active Substance: SIMVASTATIN
     Indication: PROPHYLAXIS
     Route: 048
  30. PREDNISONE. [Suspect]
     Active Substance: PREDNISONE
     Dosage: 100 MG, UNK
     Route: 048
     Dates: start: 20180919, end: 20180923
  31. TILIDIN [Concomitant]
     Active Substance: NALOXONE HYDROCHLORIDE\TILIDINE HYDROCHLORIDE
     Indication: LUMBAR SPINAL STENOSIS
     Dosage: UNK
     Route: 048
     Dates: start: 20110901
  32. ENDOXAN 1G [Suspect]
     Active Substance: CYCLOPHOSPHAMIDE
     Dosage: 1090 MG, UNK
     Route: 041
     Dates: start: 20180822, end: 20180822
  33. DOXORUBICIN [Suspect]
     Active Substance: DOXORUBICIN
     Indication: PRODUCT USED FOR UNKNOWN INDICATION
     Dosage: 73 MG, UNK
     Route: 041
     Dates: start: 20180808, end: 20180808
  34. VINCRISTINE [Suspect]
     Active Substance: VINCRISTINE
     Indication: DIFFUSE LARGE B-CELL LYMPHOMA
     Dosage: 2 MG, UNK
     Route: 041
     Dates: start: 20180720, end: 20180720
  35. PREDNISONE. [Suspect]
     Active Substance: PREDNISONE
     Dosage: 500 UNK, UNK
     Route: 048
     Dates: start: 20180905, end: 20180909
  36. HYDROCHLOROTHIAZID [Concomitant]
     Active Substance: HYDROCHLOROTHIAZIDE
     Indication: HYPERTENSION
     Route: 048
  37. ENDOXAN 1G [Suspect]
     Active Substance: CYCLOPHOSPHAMIDE
     Dosage: 1090 MG (INFUSION RATE 16.6 (ML/MIN) FROM 12:20 TO 13:25)
     Route: 041
     Dates: start: 20181009, end: 20181009
  38. RIXIMYO [Suspect]
     Active Substance: RITUXIMAB
     Dosage: 730 MG, UNK
     Route: 041
     Dates: start: 20180904, end: 20180904
  39. PREDNISONE. [Suspect]
     Active Substance: PREDNISONE
     Dosage: 500 MG, UNK
     Route: 048
     Dates: start: 20181022, end: 20181026
  40. PANTOPRAZOL [Concomitant]
     Active Substance: PANTOPRAZOLE SODIUM
     Indication: PROPHYLAXIS
     Route: 048
  41. DOXORUBICIN [Suspect]
     Active Substance: DOXORUBICIN
     Dosage: INFUSION RATE 2.0 ML/MIN FROM 09:50 TO 12:05
     Route: 041
     Dates: start: 20181009, end: 20181009
  42. MESNA. [Concomitant]
     Active Substance: MESNA
     Indication: PROPHYLAXIS
     Dosage: UNK
     Route: 042
     Dates: start: 20180720
  43. METOPROLOL. [Concomitant]
     Active Substance: METOPROLOL
     Indication: HYPERTENSION
     Route: 048
  44. CLEMASTIN [Concomitant]
     Active Substance: CLEMASTINE
     Indication: PROPHYLAXIS
     Dosage: UNK
     Route: 042
     Dates: start: 20180719
  45. PREDNISOLON [Concomitant]
     Active Substance: PREDNISOLONE
     Indication: PROPHYLAXIS
     Dosage: UNK
     Route: 042
     Dates: start: 20180719
  46. CHOLECALCIFEROL [Concomitant]
     Active Substance: CHOLECALCIFEROL
     Indication: PROPHYLAXIS
     Route: 048
  47. ASPIRIN. [Concomitant]
     Active Substance: ASPIRIN
     Indication: PROPHYLAXIS
     Route: 048
  48. ENDOXAN 1G [Suspect]
     Active Substance: CYCLOPHOSPHAMIDE
     Indication: PRODUCT USED FOR UNKNOWN INDICATION
     Dosage: 1090 MG, UNK
     Route: 041
     Dates: start: 20180808, end: 20180808
  49. ENDOXAN 1G [Suspect]
     Active Substance: CYCLOPHOSPHAMIDE
     Dosage: 1090 MG, UNK
     Route: 041
     Dates: start: 20180905, end: 20180905
  50. DOXORUBICIN [Suspect]
     Active Substance: DOXORUBICIN
     Dosage: 73 MG, UNK
     Route: 041
     Dates: start: 20180905, end: 20180905
  51. VINCRISTINE [Suspect]
     Active Substance: VINCRISTINE
     Route: 041
     Dates: start: 20180905, end: 20180905
  52. RIXIMYO [Suspect]
     Active Substance: RITUXIMAB
     Dosage: 375 MG, UNK
     Route: 041
     Dates: start: 20181105
  53. RIXIMYO [Suspect]
     Active Substance: RITUXIMAB
     Dosage: 375 MG, UNK
     Route: 041
     Dates: start: 20181022, end: 20181022
  54. PREDNISONE. [Suspect]
     Active Substance: PREDNISONE
     Dosage: 500 UNK, UNK
     Route: 048
     Dates: start: 20180821, end: 20180825
  55. PREDNISONE. [Suspect]
     Active Substance: PREDNISONE
     Dosage: 500 MG, UNK
     Route: 048
     Dates: start: 20181105, end: 20181109
  56. METOCLOPRAMID [Concomitant]
     Active Substance: METOCLOPRAMIDE
     Indication: PROPHYLAXIS
     Dosage: UNK
     Route: 048
     Dates: start: 20180721

REACTIONS (20)
  - Haemorrhoids [Not Recovered/Not Resolved]
  - Fatigue [Not Recovered/Not Resolved]
  - Vomiting [Recovered/Resolved]
  - Haemorrhoidal haemorrhage [Not Recovered/Not Resolved]
  - Herpes zoster [Not Recovered/Not Resolved]
  - Gastritis [Recovering/Resolving]
  - Anaemia [Recovered/Resolved]
  - Gamma-glutamyltransferase increased [Not Recovered/Not Resolved]
  - Alanine aminotransferase increased [Recovered/Resolved]
  - Platelet count decreased [Recovered/Resolved]
  - Aspartate aminotransferase increased [Recovered/Resolved]
  - Peripheral sensory neuropathy [Unknown]
  - Hyperglycaemia [Recovered/Resolved]
  - Hyperuricaemia [Recovered/Resolved]
  - Decreased appetite [Recovered/Resolved]
  - Cystitis [Not Recovered/Not Resolved]
  - Abdominal pain upper [Recovered/Resolved]
  - Nausea [Recovered/Resolved]
  - Vomiting [Recovered/Resolved]
  - Hypoglycaemia [Recovered/Resolved]

NARRATIVE: CASE EVENT DATE: 20180804
